FAERS Safety Report 11882408 (Version 3)
Quarter: 2016Q1

REPORT INFORMATION
  Report Type: Report from Study
  Country: PH (occurrence: PH)
  Receive Date: 20151231
  Receipt Date: 20160203
  Transmission Date: 20160526
  Serious: Yes (Other)
  Sender: FDA-Public Use
  Company Number: PH-JNJFOC-20151217914

PATIENT
  Sex: Male
  Weight: 58.88 kg

DRUGS (3)
  1. SYLVANT [Suspect]
     Active Substance: SILTUXIMAB
     Indication: CASTLEMAN^S DISEASE
     Dosage: STRENGTH OF 100 + 400MG FOR COMPASSIONATE USE
     Route: 042
     Dates: start: 201507
  2. HYDROCORTISONE. [Concomitant]
     Active Substance: HYDROCORTISONE
     Route: 061
  3. CALCITRENE [Concomitant]
     Active Substance: CALCIPOTRIENE
     Route: 061

REACTIONS (7)
  - Fall [Unknown]
  - Drug dose omission [Unknown]
  - Hypersomnia [Unknown]
  - Laceration [Unknown]
  - Decreased appetite [Unknown]
  - Somnolence [Unknown]
  - Asthenia [Not Recovered/Not Resolved]
